FAERS Safety Report 6527136-3 (Version None)
Quarter: 2010Q1

REPORT INFORMATION
  Report Type: 
  Country: None (occurrence: None)
  Receive Date: 20100105
  Receipt Date: 20091224
  Transmission Date: 20100710
  Serious: Yes (Other)
  Sender: FDA-Public Use
  Company Number: JP-ELI_LILLY_AND_COMPANY-JP200912005822

PATIENT
  Age: 76 Year
  Sex: Male

DRUGS (7)
  1. ALIMTA [Suspect]
     Indication: PLEURAL MESOTHELIOMA MALIGNANT
     Dosage: 500 MG/M2, UNKNOWN
     Route: 042
     Dates: start: 20091217
  2. CARBOPLATIN [Concomitant]
     Indication: PLEURAL MESOTHELIOMA MALIGNANT
     Dosage: UNK, UNKNOWN
     Route: 042
     Dates: start: 20091217
  3. PANVITAN [Concomitant]
     Indication: PROPHYLAXIS
     Dosage: 1 G, UNKNOWN
     Route: 048
     Dates: start: 20091210
  4. METHYCOBAL [Concomitant]
     Indication: PROPHYLAXIS
     Dosage: 1 MG, UNKNOWN
     Route: 030
     Dates: start: 20091210
  5. WARFARIN [Concomitant]
     Indication: ATRIAL FIBRILLATION
     Dosage: 2.5 MG, UNKNOWN
     Route: 048
     Dates: end: 20091125
  6. WARFARIN [Concomitant]
     Dosage: 2.5 MG, UNKNOWN
     Route: 048
     Dates: start: 20091205
  7. DUROTEP [Concomitant]
     Dosage: 2.1 MG, UNKNOWN
     Route: 062

REACTIONS (2)
  - OFF LABEL USE [None]
  - PROTHROMBIN TIME PROLONGED [None]
